FAERS Safety Report 12802305 (Version 1)
Quarter: 2016Q4

REPORT INFORMATION
  Report Type: Spontaneous
  Country: US (occurrence: US)
  Receive Date: 20161003
  Receipt Date: 20161003
  Transmission Date: 20170207
  Serious: No
  Sender: FDA-Public Use
  Company Number: US-JAZZ-2016-US-012139

PATIENT
  Age: 51 Year
  Sex: Female
  Weight: 41.63 kg

DRUGS (25)
  1. AMBIEN CR [Concomitant]
     Active Substance: ZOLPIDEM TARTRATE
     Indication: SLEEP DISORDER
  2. ESTRACE [Concomitant]
     Active Substance: ESTRADIOL
     Indication: HORMONE REPLACEMENT THERAPY
  3. VALIUM [Concomitant]
     Active Substance: DIAZEPAM
  4. PROGESTERONE. [Concomitant]
     Active Substance: PROGESTERONE
  5. CREON [Concomitant]
     Active Substance: PANCRELIPASE AMYLASE\PANCRELIPASE LIPASE\PANCRELIPASE PROTEASE
  6. SPIRONOLACTONE. [Concomitant]
     Active Substance: SPIRONOLACTONE
  7. NORCO [Concomitant]
     Active Substance: ACETAMINOPHEN\HYDROCODONE BITARTRATE
  8. MELATONIN [Concomitant]
     Active Substance: MELATONIN
  9. XYREM [Suspect]
     Active Substance: SODIUM OXYBATE
     Indication: INSOMNIA
  10. VALERIAN ROOT [Concomitant]
     Active Substance: VALERIAN
  11. XYREM [Suspect]
     Active Substance: SODIUM OXYBATE
     Indication: FIBROMYALGIA
     Dosage: 4.5 G, BID
     Route: 048
     Dates: start: 201207
  12. LOTEMAX [Concomitant]
     Active Substance: LOTEPREDNOL ETABONATE
  13. VIVELLE-DOT [Concomitant]
     Active Substance: ESTRADIOL
  14. CLONAZEPAM. [Concomitant]
     Active Substance: CLONAZEPAM
  15. VANIQA [Concomitant]
     Active Substance: EFLORNITHINE HYDROCHLORIDE
  16. LUNESTA [Concomitant]
     Active Substance: ESZOPICLONE
     Indication: SLEEP DISORDER
     Dosage: UNK
     Dates: start: 2007
  17. TRAVATAN Z [Concomitant]
     Active Substance: TRAVOPROST
  18. NYSTATIN. [Concomitant]
     Active Substance: NYSTATIN
  19. ARMOUR THYROID [Concomitant]
     Active Substance: THYROID, PORCINE
  20. TESTOSTERONE. [Concomitant]
     Active Substance: TESTOSTERONE
  21. ERGOCALCIFEROL. [Concomitant]
     Active Substance: ERGOCALCIFEROL
  22. DIFLUCAN [Concomitant]
     Active Substance: FLUCONAZOLE
  23. ESTRADIOL TRANSDERMAL SYSTEM [Concomitant]
     Active Substance: ESTRADIOL
     Indication: HORMONE REPLACEMENT THERAPY
  24. HYDROCORTISONE. [Concomitant]
     Active Substance: HYDROCORTISONE
  25. KLONOPIN [Concomitant]
     Active Substance: CLONAZEPAM

REACTIONS (2)
  - Weight decreased [Unknown]
  - Pancreatic enzymes decreased [Unknown]

NARRATIVE: CASE EVENT DATE: 2016
